FAERS Safety Report 5075407-2 (Version None)
Quarter: 2006Q3

REPORT INFORMATION
  Report Type: 
  Country: None (occurrence: None)
  Receive Date: 20060714
  Receipt Date: 20060317
  Transmission Date: 20061208
  Serious: No
  Sender: FDA-Public Use
  Company Number: 2006SP001270

PATIENT
  Age: 59 Year
  Sex: Female
  Weight: 71.6683 kg

DRUGS (7)
  1. LUNESTA [Suspect]
     Indication: INSOMNIA
     Dosage: HS;ORAL
     Route: 048
     Dates: start: 20060101, end: 20060201
  2. SEROQUEL [Concomitant]
  3. ZOLOFT [Concomitant]
  4. COREG [Concomitant]
  5. POTASSIUM [Concomitant]
  6. WATER PILLS [Concomitant]
  7. LORTAB [Concomitant]

REACTIONS (3)
  - FALL [None]
  - SLEEP TALKING [None]
  - SLEEP WALKING [None]
